FAERS Safety Report 13074411 (Version 1)
Quarter: 2016Q4

REPORT INFORMATION
  Report Type: Spontaneous
  Country: FR (occurrence: FR)
  Receive Date: 20161230
  Receipt Date: 20161230
  Transmission Date: 20170207
  Serious: Yes (Other)
  Sender: FDA-Public Use
  Company Number: FR-CONCORDIA PHARMACEUTICALS INC.-GSH201612-006566

PATIENT
  Age: 72 Year
  Sex: Male

DRUGS (1)
  1. ALFUZOSIN [Suspect]
     Active Substance: ALFUZOSIN
     Route: 065
     Dates: start: 201611

REACTIONS (1)
  - Haematuria [Unknown]

NARRATIVE: CASE EVENT DATE: 2016
